FAERS Safety Report 4546365-1 (Version None)
Quarter: 2005Q1

REPORT INFORMATION
  Report Type: 
  Country: None (occurrence: None)
  Receive Date: 20050103
  Receipt Date: 20041221
  Transmission Date: 20050727
  Serious: Yes (Other)
  Sender: FDA-Public Use
  Company Number: 2004118531

PATIENT
  Age: 3 Year
  Sex: Female

DRUGS (1)
  1. NIFEDIPINE [Suspect]
     Indication: RAYNAUD'S PHENOMENON
     Dosage: 10 MG, ORAL
     Route: 048
     Dates: start: 20041001, end: 20041101

REACTIONS (2)
  - BLISTER [None]
  - ERYTHEMA MULTIFORME [None]
